FAERS Safety Report 6174287-1 (Version None)
Quarter: 2009Q2

REPORT INFORMATION
  Report Type: 
  Country: None (occurrence: None)
  Receive Date: 20090430
  Receipt Date: 20080501
  Transmission Date: 20091009
  Serious: No
  Sender: FDA-Public Use
  Company Number: US-ASTRAZENECA-2008UW09018

PATIENT
  Age: 61 Year
  Sex: Male

DRUGS (8)
  1. NEXIUM [Suspect]
     Indication: HIATUS HERNIA
     Route: 048
     Dates: start: 20080409
  2. NEXIUM [Suspect]
     Indication: GASTROOESOPHAGEAL REFLUX DISEASE
     Route: 048
     Dates: start: 20080409
  3. LIPITOR [Concomitant]
  4. LISINOPRIL [Concomitant]
  5. FLOMAX [Concomitant]
  6. ELMIRON [Concomitant]
  7. NORVASIL [Concomitant]
  8. BENEFIBER [Concomitant]

REACTIONS (3)
  - DIARRHOEA [None]
  - HYPERTENSION [None]
  - PULSE ABNORMAL [None]
